FAERS Safety Report 7550854-5 (Version None)
Quarter: 2011Q2

REPORT INFORMATION
  Report Type: 
  Country: None (occurrence: None)
  Receive Date: 20110616
  Receipt Date: 20110612
  Transmission Date: 20111010
  Serious: No
  Sender: FDA-Public Use
  Company Number: US-PFIZER INC-2011127800

PATIENT
  Sex: Female
  Weight: 109 kg

DRUGS (6)
  1. DICLOFENAC [Suspect]
     Indication: BACK PAIN
     Dosage: 50 MG, 2X/DAY
     Route: 048
     Dates: start: 20110610, end: 20110612
  2. TRAMADOL HCL [Suspect]
     Indication: BACK PAIN
     Dosage: 50 MG, AS NEEDED
     Route: 048
     Dates: start: 20110610, end: 20110612
  3. ADVIL LIQUI-GELS [Suspect]
     Indication: PAIN
     Dosage: UNK
     Route: 048
     Dates: start: 20110611, end: 20110612
  4. TRAMADOL HCL [Suspect]
     Indication: GROIN PAIN
  5. DICLOFENAC SODIUM [Suspect]
     Indication: GROIN PAIN
  6. AMLODIPINE BESYLATE AND BENAZEPRIL HCL [Concomitant]
     Indication: HYPERTENSION
     Dosage: 10-20, DAILY
     Route: 048

REACTIONS (2)
  - NECK PAIN [None]
  - VEIN PAIN [None]
